FAERS Safety Report 7167350-X (Version None)
Quarter: 2010Q4

REPORT INFORMATION
  Report Type: 
  Country: None (occurrence: None)
  Receive Date: 20101216
  Receipt Date: 20101208
  Transmission Date: 20110411
  Serious: Yes (Hospitalization)
  Sender: FDA-Public Use
  Company Number: FR-BRISTOL-MYERS SQUIBB COMPANY-15431885

PATIENT
  Age: 62 Year
  Sex: Female

DRUGS (5)
  1. TAXOL [Suspect]
     Indication: BREAST CANCER
     Route: 042
  2. NOLVADEX [Suspect]
  3. PHENERGAN [Suspect]
     Dosage: 2.5% PHENERGAN
  4. ZOPHREN [Suspect]
     Dosage: 1 DF = 8MG/4ML
  5. RANIPLEX [Suspect]
     Dosage: 1 DF = 50MG/2ML

REACTIONS (3)
  - DYSARTHRIA [None]
  - PARAESTHESIA [None]
  - PARESIS [None]
